FAERS Safety Report 21666030 (Version 1)
Quarter: 2022Q4

REPORT INFORMATION
  Report Type: Report from Study
  Country: US (occurrence: US)
  Receive Date: 20221201
  Receipt Date: 20221201
  Transmission Date: 20230113
  Serious: No
  Sender: FDA-Public Use
  Company Number: US-ABBVIE-4218906

PATIENT
  Sex: Male

DRUGS (1)
  1. VENCLEXTA [Suspect]
     Active Substance: VENETOCLAX
     Indication: Thyroid cancer
     Dosage: TIME INTERVAL: 0.33333333 DAYS: STRENGTH: 100 MG
     Route: 048

REACTIONS (1)
  - Off label use [Unknown]
